FAERS Safety Report 11189221 (Version 4)
Quarter: 2016Q3

REPORT INFORMATION
  Report Type: Report from Study
  Country: JP (occurrence: JP)
  Receive Date: 20150615
  Receipt Date: 20160905
  Transmission Date: 20161109
  Serious: Yes (Other)
  Sender: FDA-Public Use
  Company Number: JP-JNJFOC-20150603312

PATIENT
  Age: 44 Year
  Sex: Female
  Weight: 47 kg

DRUGS (29)
  1. PEGINTRON [Suspect]
     Active Substance: PEGINTERFERON ALFA-2B
     Indication: CHRONIC HEPATITIS C
     Route: 058
     Dates: start: 20141226
  2. HIRUDOID [Concomitant]
     Active Substance: GLYCOSAMINOGLYCANS
     Indication: ECZEMA ASTEATOTIC
     Route: 061
     Dates: start: 20141219, end: 20150209
  3. LOCOID [Concomitant]
     Active Substance: HYDROCORTISONE BUTYRATE
     Indication: IMMUNE THROMBOCYTOPENIC PURPURA
     Route: 061
     Dates: start: 20141219
  4. KENALOG [Concomitant]
     Active Substance: TRIAMCINOLONE ACETONIDE
     Dosage: 5 MG ON AS NEEDED BASIS (P.R.N.)
     Route: 061
     Dates: start: 20150324
  5. PEGINTRON [Suspect]
     Active Substance: PEGINTERFERON ALFA-2B
     Indication: CHRONIC HEPATITIS C
     Route: 058
     Dates: start: 20141205, end: 20141205
  6. PEGINTRON [Suspect]
     Active Substance: PEGINTERFERON ALFA-2B
     Indication: CHRONIC HEPATITIS C
     Route: 058
     Dates: start: 20141219, end: 20141219
  7. PEGINTRON [Suspect]
     Active Substance: PEGINTERFERON ALFA-2B
     Indication: CHRONIC HEPATITIS C
     Route: 058
     Dates: start: 20141226
  8. SOVRIAD [Suspect]
     Active Substance: SIMEPREVIR
     Indication: CHRONIC HEPATITIS C
     Route: 048
     Dates: start: 20141129, end: 20150221
  9. PEGINTRON [Suspect]
     Active Substance: PEGINTERFERON ALFA-2B
     Indication: CHRONIC HEPATITIS C
     Route: 058
     Dates: start: 20141212, end: 20141212
  10. PEGINTRON [Suspect]
     Active Substance: PEGINTERFERON ALFA-2B
     Indication: CHRONIC HEPATITIS C
     Route: 058
     Dates: start: 20141212, end: 20141212
  11. XYZAL [Concomitant]
     Active Substance: LEVOCETIRIZINE DIHYDROCHLORIDE
     Indication: MILIARIA
     Route: 048
     Dates: start: 20141212
  12. PEGINTRON [Suspect]
     Active Substance: PEGINTERFERON ALFA-2B
     Indication: CHRONIC HEPATITIS C
     Route: 058
     Dates: start: 20141129, end: 20141129
  13. HIRUDOID [Concomitant]
     Active Substance: GLYCOSAMINOGLYCANS
     Indication: PALMOPLANTAR KERATODERMA
     Route: 061
     Dates: start: 20141219, end: 20150209
  14. HIRUDOID [Concomitant]
     Active Substance: GLYCOSAMINOGLYCANS
     Indication: IMMUNE THROMBOCYTOPENIC PURPURA
     Route: 061
     Dates: start: 20150210, end: 20150522
  15. LOCOID [Concomitant]
     Active Substance: HYDROCORTISONE BUTYRATE
     Indication: PALMOPLANTAR KERATODERMA
     Route: 061
     Dates: start: 20141219
  16. PEGINTRON [Suspect]
     Active Substance: PEGINTERFERON ALFA-2B
     Indication: CHRONIC HEPATITIS C
     Route: 058
     Dates: start: 20150303, end: 20150522
  17. HIRUDOID [Concomitant]
     Active Substance: GLYCOSAMINOGLYCANS
     Indication: ECZEMA ASTEATOTIC
     Route: 061
     Dates: start: 20150210, end: 20150522
  18. PRIMPERAN [Concomitant]
     Active Substance: METOCLOPRAMIDE HYDROCHLORIDE
     Indication: PROPHYLAXIS
     Dosage: 5 MG ON AS NEEDED BASIS (P.R.N.)
     Route: 048
     Dates: start: 20141129, end: 20141203
  19. PEGINTRON [Suspect]
     Active Substance: PEGINTERFERON ALFA-2B
     Indication: CHRONIC HEPATITIS C
     Route: 058
     Dates: start: 20141219, end: 20141219
  20. HIRUDOID [Concomitant]
     Active Substance: GLYCOSAMINOGLYCANS
     Indication: IMMUNE THROMBOCYTOPENIC PURPURA
     Route: 061
     Dates: start: 20141219, end: 20150209
  21. RIBAVIRIN. [Suspect]
     Active Substance: RIBAVIRIN
     Indication: CHRONIC HEPATITIS C
     Route: 048
     Dates: start: 20141129, end: 20150521
  22. PEGINTRON [Suspect]
     Active Substance: PEGINTERFERON ALFA-2B
     Indication: CHRONIC HEPATITIS C
     Route: 058
     Dates: start: 20141205, end: 20141205
  23. REBAMIPIDE [Concomitant]
     Active Substance: REBAMIPIDE
     Indication: PROPHYLAXIS
     Route: 048
     Dates: end: 20150511
  24. HIRUDOID [Concomitant]
     Active Substance: GLYCOSAMINOGLYCANS
     Indication: PALMOPLANTAR KERATODERMA
     Route: 061
     Dates: start: 20150210, end: 20150522
  25. OXAROL [Concomitant]
     Active Substance: MAXACALCITOL
     Indication: IMMUNE THROMBOCYTOPENIC PURPURA
     Route: 061
     Dates: start: 20141212, end: 20150119
  26. PEGINTRON [Suspect]
     Active Substance: PEGINTERFERON ALFA-2B
     Indication: CHRONIC HEPATITIS C
     Route: 058
     Dates: start: 20150303, end: 20150522
  27. LOCOID [Concomitant]
     Active Substance: HYDROCORTISONE BUTYRATE
     Indication: ECZEMA ASTEATOTIC
     Route: 061
     Dates: start: 20141219
  28. OXAROL [Concomitant]
     Active Substance: MAXACALCITOL
     Indication: PALMOPLANTAR KERATODERMA
     Route: 061
     Dates: start: 20141212, end: 20150119
  29. XYZAL [Concomitant]
     Active Substance: LEVOCETIRIZINE DIHYDROCHLORIDE
     Indication: IMMUNE THROMBOCYTOPENIC PURPURA
     Route: 048
     Dates: start: 20141212

REACTIONS (5)
  - White blood cell count decreased [Not Recovered/Not Resolved]
  - Pyrexia [Recovering/Resolving]
  - Sinusitis [Recovering/Resolving]
  - Blood bilirubin increased [Recovering/Resolving]
  - Platelet count decreased [Not Recovered/Not Resolved]

NARRATIVE: CASE EVENT DATE: 20141129
